FAERS Safety Report 14581026 (Version 3)
Quarter: 2018Q4

REPORT INFORMATION
  Report Type: Spontaneous
  Country: US (occurrence: US)
  Receive Date: 20180228
  Receipt Date: 20181106
  Transmission Date: 20190204
  Serious: No
  Sender: FDA-Public Use
  Company Number: US-PFIZER INC-2018080969

PATIENT
  Age: 66 Year
  Sex: Female
  Weight: 54 kg

DRUGS (1)
  1. METHOTREXATE SODIUM. [Suspect]
     Active Substance: METHOTREXATE SODIUM
     Indication: POLYMYALGIA RHEUMATICA
     Dosage: UNK UNK, DAILY, (2.5 OR 5, IT WAS LOW)
     Route: 048

REACTIONS (4)
  - Pain [Unknown]
  - Pneumonitis [Recovered/Resolved]
  - Drug ineffective [Unknown]
  - Drug hypersensitivity [Unknown]
